FAERS Safety Report 20895571 (Version 1)
Quarter: 2022Q2

REPORT INFORMATION
  Report Type: Spontaneous
  Country: US (occurrence: US)
  Receive Date: 20220531
  Receipt Date: 20220531
  Transmission Date: 20220721
  Serious: Yes (Other)
  Sender: FDA-Public Use
  Company Number: US-CELGENE-USA-20220200774

PATIENT
  Age: 71 Year
  Sex: Female
  Weight: 86.64 kg

DRUGS (6)
  1. REVLIMID [Suspect]
     Active Substance: LENALIDOMIDE
     Indication: Plasma cell myeloma
     Dosage: 20 MILLIGRAM
     Route: 048
     Dates: start: 201802
  2. REVLIMID [Suspect]
     Active Substance: LENALIDOMIDE
     Dosage: 15 MILLIGRAM
     Route: 048
     Dates: start: 201808
  3. REVLIMID [Suspect]
     Active Substance: LENALIDOMIDE
     Dosage: 5 MILLIGRAM
     Route: 048
     Dates: start: 201901
  4. REVLIMID [Suspect]
     Active Substance: LENALIDOMIDE
     Dosage: 2.5 MILLIGRAM
     Route: 048
     Dates: start: 202002
  5. REVLIMID [Suspect]
     Active Substance: LENALIDOMIDE
     Dosage: 2.5 MILLIGRAM; DAY 1-14 Q 21 DAYS
     Route: 048
     Dates: start: 20200226
  6. REVLIMID [Suspect]
     Active Substance: LENALIDOMIDE
     Dosage: DAY 1-14 Q 21 DAYS
     Route: 048
     Dates: start: 20190115

REACTIONS (4)
  - Constipation [Not Recovered/Not Resolved]
  - Neuropathy peripheral [Unknown]
  - Product dose omission issue [Unknown]
  - Off label use [Unknown]
